FAERS Safety Report 4847255-7 (Version None)
Quarter: 2005Q4

REPORT INFORMATION
  Report Type: 
  Country: None (occurrence: None)
  Receive Date: 20051207
  Receipt Date: 20051130
  Transmission Date: 20060501
  Serious: Yes (Other)
  Sender: FDA-Public Use
  Company Number: JP-JPN-A20052946

PATIENT
  Sex: Female

DRUGS (2)
  1. PAXIL [Suspect]
     Route: 048
  2. CLOMIPRAMINE HCL [Suspect]
     Route: 065

REACTIONS (2)
  - CONSCIOUSNESS FLUCTUATING [None]
  - DRUG INTERACTION [None]
